FAERS Safety Report 8919778 (Version 1)
Quarter: 2012Q4

REPORT INFORMATION
  Report Type: 
  Country: RU (occurrence: RU)
  Receive Date: 20121121
  Receipt Date: 20121121
  Transmission Date: 20130627
  Serious: Yes (Hospitalization)
  Sender: FDA-Public Use
  Company Number: RU-BAYER-2012-119519

PATIENT
  Age: 43 Year
  Sex: Female
  Weight: 93 kg

DRUGS (1)
  1. MIRENA [Suspect]
     Indication: ENDOMETRIAL HYPERPLASIA
     Dosage: 20 mcg/24hr, CONT
     Route: 015
     Dates: start: 20120712, end: 20121001

REACTIONS (2)
  - Breast cancer stage I [None]
  - Off label use [None]
